FAERS Safety Report 6370527-4 (Version None)
Quarter: 2009Q3

REPORT INFORMATION
  Report Type: 
  Country: None (occurrence: None)
  Receive Date: 20090923
  Receipt Date: 20090915
  Transmission Date: 20100115
  Serious: Yes (Hospitalization)
  Sender: FDA-Public Use
  Company Number: A0806878A

PATIENT
  Age: 60 Year
  Sex: Female

DRUGS (14)
  1. AVANDIA [Suspect]
     Indication: DIABETES MELLITUS
     Dosage: 8MG PER DAY
     Route: 048
     Dates: start: 20060101, end: 20070101
  2. ASPIRIN [Concomitant]
  3. CLONIDINE [Concomitant]
  4. FUROSEMIDE [Concomitant]
  5. HECTOROL [Concomitant]
  6. ISOSORBIDE [Concomitant]
  7. LISINOPRIL [Concomitant]
  8. PLAVIX [Concomitant]
  9. PRAVACHOL [Concomitant]
  10. PROCRIT [Concomitant]
  11. TOPROL-XL [Concomitant]
  12. TYLENOL (CAPLET) [Concomitant]
  13. VENOFER [Concomitant]
  14. HUMULIN N [Concomitant]

REACTIONS (2)
  - CARDIAC FAILURE CONGESTIVE [None]
  - MYOCARDIAL INFARCTION [None]
